FAERS Safety Report 7192456-9 (Version None)
Quarter: 2010Q4

REPORT INFORMATION
  Report Type: 
  Country: None (occurrence: None)
  Receive Date: 20101223
  Receipt Date: 20100824
  Transmission Date: 20110411
  Serious: No
  Sender: FDA-Public Use
  Company Number: US-AMGEN-KDL433669

PATIENT

DRUGS (3)
  1. ENBREL [Suspect]
     Indication: RHEUMATOID ARTHRITIS
     Dosage: 50 MG, QWK
     Route: 058
     Dates: start: 20100819
  2. LEFLUNOMIDE [Concomitant]
     Dosage: 10 MG, QOD
  3. LEFLUNOMIDE [Concomitant]
     Dosage: 20 MG, UNK

REACTIONS (2)
  - HEADACHE [None]
  - SINUS CONGESTION [None]
